FAERS Safety Report 20760414 (Version 4)
Quarter: 2022Q4

REPORT INFORMATION
  Report Type: Report from Study
  Country: US (occurrence: US)
  Receive Date: 20220428
  Receipt Date: 20221222
  Transmission Date: 20230112
  Serious: Yes (Hospitalization, Other)
  Sender: FDA-Public Use
  Company Number: US-ABBVIE-22K-163-4373307-00

PATIENT
  Sex: Female

DRUGS (5)
  1. RINVOQ [Suspect]
     Active Substance: UPADACITINIB
     Indication: Rheumatoid arthritis
     Dosage: LAST ADMINISTRATION DATE 2022?FORM STRENGTH 15 MG
     Route: 048
     Dates: start: 20210823
  2. RINVOQ [Suspect]
     Active Substance: UPADACITINIB
     Indication: Rheumatoid arthritis
     Dosage: FORM STRENGTH 15 MG
     Route: 048
     Dates: start: 2022
  3. RINVOQ [Suspect]
     Active Substance: UPADACITINIB
     Indication: Rheumatoid arthritis
     Route: 048
     Dates: start: 202108
  4. RINVOQ [Suspect]
     Active Substance: UPADACITINIB
     Indication: Rheumatoid arthritis
     Dosage: 15 MG
     Route: 048
     Dates: start: 20210823
  5. RINVOQ [Suspect]
     Active Substance: UPADACITINIB
     Indication: Rheumatoid arthritis
     Dosage: FORM STRENGTH 15 MG
     Route: 048
     Dates: start: 202108, end: 202108

REACTIONS (18)
  - Medical device removal [Recovered/Resolved]
  - Urinary tract infection [Unknown]
  - Skin ulcer [Unknown]
  - Foot fracture [Unknown]
  - Joint swelling [Unknown]
  - Pain [Not Recovered/Not Resolved]
  - Staphylococcal infection [Recovered/Resolved]
  - Nasopharyngitis [Unknown]
  - Muscle strain [Unknown]
  - Dyspnoea [Unknown]
  - Peripheral swelling [Unknown]
  - Ligament operation [Unknown]
  - Musculoskeletal stiffness [Not Recovered/Not Resolved]
  - Localised infection [Unknown]
  - Fall [Unknown]
  - Limb injury [Unknown]
  - Nodule [Unknown]
  - Peripheral swelling [Unknown]

NARRATIVE: CASE EVENT DATE: 20220101
